FAERS Safety Report 8585467-X (Version None)
Quarter: 2012Q3

REPORT INFORMATION
  Report Type: 
  Country: None (occurrence: None)
  Receive Date: 20120810
  Receipt Date: 20110906
  Transmission Date: 20120928
  Serious: No
  Sender: FDA-Public Use
  Company Number: US-GLAXOSMITHKLINE-A0943613A

PATIENT
  Sex: Female

DRUGS (1)
  1. REQUIP XL [Suspect]
     Indication: PRODUCT USED FOR UNKNOWN INDICATION
     Dosage: 12MG TWICE PER DAY
     Route: 065
     Dates: start: 20091008

REACTIONS (3)
  - DRUG ADMINISTRATION ERROR [None]
  - JOINT SWELLING [None]
  - OEDEMA PERIPHERAL [None]
